FAERS Safety Report 20036932 (Version 3)
Quarter: 2021Q4

REPORT INFORMATION
  Report Type: Spontaneous
  Country: JP (occurrence: JP)
  Receive Date: 20211105
  Receipt Date: 20211117
  Transmission Date: 20220303
  Serious: Yes (Other)
  Sender: FDA-Public Use
  Company Number: JP-GSKNCCC-Case-01343771_AE-51302

PATIENT
  Age: 70 Year
  Sex: Male

DRUGS (9)
  1. TRELEGY ELLIPTA [Suspect]
     Active Substance: FLUTICASONE FUROATE\UMECLIDINIUM BROMIDE\VILANTEROL TRIFENATATE
     Indication: Asthma
     Dosage: 100 UG (1 INHALATION), ONLY ONCE
     Dates: start: 20211030, end: 20211030
  2. TRELEGY ELLIPTA [Suspect]
     Active Substance: FLUTICASONE FUROATE\UMECLIDINIUM BROMIDE\VILANTEROL TRIFENATATE
     Indication: Oropharyngeal discomfort
  3. OLODATEROL HYDROCHLORIDE\TIOTROPIUM BROMIDE MONOHYDRATE [Concomitant]
     Active Substance: OLODATEROL HYDROCHLORIDE\TIOTROPIUM BROMIDE MONOHYDRATE
     Indication: Asthma
     Dosage: UNK
     Dates: start: 20210526
  4. CANDESARTAN CILEXETIL [Concomitant]
     Active Substance: CANDESARTAN CILEXETIL
     Indication: Hypertension
     Dosage: 1 DF/DAY
     Dates: start: 20210525
  5. AMLODIPINE BESYLATE [Concomitant]
     Active Substance: AMLODIPINE BESYLATE
     Indication: Hypertension
     Dosage: 1 DF/DAY
     Dates: start: 20210525
  6. RABEPRAZOLE SODIUM TABLET [Concomitant]
     Indication: Gastrooesophageal reflux disease
     Dosage: 1 DF/DAY
  7. FUROSEMIDE [Concomitant]
     Active Substance: FUROSEMIDE
     Indication: Hypertension
     Dosage: 1 DF/DAY
  8. CEFCAPENE PIVOXIL HYDROCHLORIDE TABLETS [Concomitant]
     Indication: Pharyngitis
     Dosage: 3 DF/DAY
     Dates: start: 20211029
  9. TRANEXAMIC ACID [Concomitant]
     Active Substance: TRANEXAMIC ACID
     Indication: Pharyngitis
     Dosage: 6 DF/DAY
     Dates: start: 20211029

REACTIONS (4)
  - Conjunctival haemorrhage [Recovered/Resolved]
  - Eye haemorrhage [Recovered/Resolved]
  - Erythema [Recovered/Resolved]
  - Wrong technique in product usage process [Unknown]

NARRATIVE: CASE EVENT DATE: 20211031
